FAERS Safety Report 5084883-0 (Version None)
Quarter: 2006Q3

REPORT INFORMATION
  Report Type: 
  Country: None (occurrence: None)
  Receive Date: 20060821
  Receipt Date: 20060808
  Transmission Date: 20061208
  Serious: Yes (Hospitalization)
  Sender: FDA-Public Use
  Company Number: US-NOVOPROD-256129

PATIENT
  Sex: Male
  Weight: 118 kg

DRUGS (1)
  1. INNOFEM [Suspect]
     Indication: DRUG USE FOR UNKNOWN INDICATION
     Dosage: 2 TABL.
     Dates: start: 20060714, end: 20060714

REACTIONS (4)
  - CIRCULATORY COLLAPSE [None]
  - DEPRESSED LEVEL OF CONSCIOUSNESS [None]
  - TOXICOLOGIC TEST ABNORMAL [None]
  - VOMITING [None]
